FAERS Safety Report 11506633 (Version 7)
Quarter: 2016Q1

REPORT INFORMATION
  Report Type: Spontaneous
  Country: US (occurrence: US)
  Receive Date: 20150915
  Receipt Date: 20160308
  Transmission Date: 20160525
  Serious: Yes (Hospitalization, Other)
  Sender: FDA-Public Use
  Company Number: US-PFIZER INC-2015291448

PATIENT
  Age: 56 Year
  Sex: Female
  Weight: 110 kg

DRUGS (6)
  1. IBRANCE [Suspect]
     Active Substance: PALBOCICLIB
     Dosage: 125 MG, CYCLIC (DAY 1-21 Q 28 DAYS)
     Route: 048
     Dates: start: 20150928
  2. LETROZOLE. [Suspect]
     Active Substance: LETROZOLE
     Dosage: UNK
  3. IBRANCE [Suspect]
     Active Substance: PALBOCICLIB
     Dosage: 100 MG, CYCLIC (D1-D2 Q 28D)
     Route: 048
     Dates: start: 20150815, end: 2015
  4. IBRANCE [Suspect]
     Active Substance: PALBOCICLIB
     Dosage: 75 MG, CYCLIC (1 CAP D1-D21 Q28D)
     Route: 048
     Dates: start: 20150815
  5. IBRANCE [Suspect]
     Active Substance: PALBOCICLIB
     Indication: BREAST CANCER STAGE IV
     Dosage: 125 MG, CYCLIC (DAY 1-21 Q 28 DAYS)
     Route: 048
     Dates: start: 20150815, end: 20150904
  6. IBRANCE [Suspect]
     Active Substance: PALBOCICLIB
     Dosage: 75 MG, CYCLIC (DAY 1, 21 Q 28 DAYS)
     Route: 048
     Dates: start: 20150815

REACTIONS (17)
  - Constipation [Unknown]
  - Epistaxis [Unknown]
  - Neutrophil count decreased [Unknown]
  - Nasal dryness [Unknown]
  - Fatigue [Unknown]
  - Nasal disorder [Unknown]
  - Dehydration [Unknown]
  - Stomatitis [Unknown]
  - White blood cell count decreased [Unknown]
  - Hot flush [Unknown]
  - Neutropenia [Not Recovered/Not Resolved]
  - Nausea [Unknown]
  - Red blood cell count decreased [Unknown]
  - Febrile neutropenia [Unknown]
  - Abdominal distension [Unknown]
  - Neuropathy peripheral [Unknown]
  - Oral herpes [Unknown]

NARRATIVE: CASE EVENT DATE: 2015
